FAERS Safety Report 20148494 (Version 7)
Quarter: 2022Q2

REPORT INFORMATION
  Report Type: Report from Study
  Country: US (occurrence: US)
  Receive Date: 20211205
  Receipt Date: 20220607
  Transmission Date: 20220721
  Serious: Yes (Hospitalization, Other)
  Sender: FDA-Public Use
  Company Number: US-EXELIXIS-CABO-21046646

PATIENT
  Age: 63 Year
  Sex: Male
  Weight: 65 kg

DRUGS (64)
  1. OPDIVO [Suspect]
     Active Substance: NIVOLUMAB
     Indication: Renal cell carcinoma
     Dosage: 240MG/24ML
     Route: 065
     Dates: start: 202108
  2. CABOMETYX [Suspect]
     Active Substance: CABOZANTINIB S-MALATE
     Indication: Metastatic renal cell carcinoma
     Dosage: 40 MG, QD
     Route: 048
     Dates: start: 202103, end: 202203
  3. CABOMETYX [Suspect]
     Active Substance: CABOZANTINIB S-MALATE
     Dosage: 40 MG, QD (MONDAY TO FRIDAY AND SKIP WEEKEND)
     Route: 048
  4. CABOMETYX [Suspect]
     Active Substance: CABOZANTINIB S-MALATE
     Dosage: 40 MG, QOD
     Route: 048
     Dates: end: 202201
  5. CABOMETYX [Suspect]
     Active Substance: CABOZANTINIB S-MALATE
     Dosage: 40 MG, QD (MONDAY TO FRIDAY AND SKIP WEEKEND)
     Route: 048
     Dates: start: 20220120, end: 202203
  6. CABOMETYX [Suspect]
     Active Substance: CABOZANTINIB S-MALATE
     Dosage: 40 MG, QD
     Route: 048
     Dates: start: 202202, end: 202202
  7. CABOMETYX [Suspect]
     Active Substance: CABOZANTINIB S-MALATE
     Dosage: 40 MG, QD (MONDAY TO FRIDAY AND SKIP WEEKEND)
     Route: 048
  8. CABOMETYX [Suspect]
     Active Substance: CABOZANTINIB S-MALATE
     Dosage: 40 MG, QD (MONDAY TO FRIDAY)
     Route: 048
     Dates: start: 202108
  9. CABOMETYX [Suspect]
     Active Substance: CABOZANTINIB S-MALATE
     Dosage: 40 MILLIGRAM, QOD
     Route: 048
     Dates: start: 202201
  10. CABOMETYX [Suspect]
     Active Substance: CABOZANTINIB S-MALATE
     Dosage: 40 MG, QD (MONDAY TO FRIDAY AND SKIP WEEKEND)
     Route: 048
  11. CABOMETYX [Suspect]
     Active Substance: CABOZANTINIB S-MALATE
     Dosage: 40 MG, QD (MONDAY TO FRIDAY AND SKIP WEEKEND)
     Route: 048
  12. CABOMETYX [Suspect]
     Active Substance: CABOZANTINIB S-MALATE
     Dosage: 40 MG, QD (MONDAY TO FRIDAY AND SKIP WEEKEND)
     Route: 048
  13. TRIAMCINOLONE [Concomitant]
     Active Substance: TRIAMCINOLONE
  14. TRIAMCINOLONE [Concomitant]
     Active Substance: TRIAMCINOLONE
     Indication: Product used for unknown indication
     Route: 065
  15. TRIAMCINOLONE [Concomitant]
     Active Substance: TRIAMCINOLONE
  16. TRIAMCINOLONE [Concomitant]
     Active Substance: TRIAMCINOLONE
  17. TRIAMCINOLONE [Concomitant]
     Active Substance: TRIAMCINOLONE
  18. SUTENT [Concomitant]
     Active Substance: SUNITINIB MALATE
  19. SUTENT [Concomitant]
     Active Substance: SUNITINIB MALATE
     Indication: Product used for unknown indication
     Dosage: UNK
     Route: 065
  20. SUTENT [Concomitant]
     Active Substance: SUNITINIB MALATE
  21. SUTENT [Concomitant]
     Active Substance: SUNITINIB MALATE
  22. SUTENT [Concomitant]
     Active Substance: SUNITINIB MALATE
  23. ANUCORT-HC [Concomitant]
     Active Substance: HYDROCORTISONE ACETATE
  24. ANUCORT-HC [Concomitant]
     Active Substance: HYDROCORTISONE ACETATE
     Indication: Product used for unknown indication
     Dosage: UNK
     Route: 065
  25. ANUCORT-HC [Concomitant]
     Active Substance: HYDROCORTISONE ACETATE
  26. ANUCORT-HC [Concomitant]
     Active Substance: HYDROCORTISONE ACETATE
  27. ANUCORT-HC [Concomitant]
     Active Substance: HYDROCORTISONE ACETATE
  28. COMPAZINE [Concomitant]
     Active Substance: PROCHLORPERAZINE MALEATE
  29. COMPAZINE [Concomitant]
     Active Substance: PROCHLORPERAZINE MALEATE
  30. COMPAZINE [Concomitant]
     Active Substance: PROCHLORPERAZINE MALEATE
  31. COMPAZINE [Concomitant]
     Active Substance: PROCHLORPERAZINE MALEATE
  32. HYDROCORTISONE [Concomitant]
     Active Substance: HYDROCORTISONE
  33. HYDROCORTISONE [Concomitant]
     Active Substance: HYDROCORTISONE
     Indication: Product used for unknown indication
     Dosage: UNK
     Route: 065
  34. HYDROCORTISONE [Concomitant]
     Active Substance: HYDROCORTISONE
  35. HYDROCORTISONE [Concomitant]
     Active Substance: HYDROCORTISONE
  36. HYDROCORTISONE [Concomitant]
     Active Substance: HYDROCORTISONE
  37. LEVOTHYROXINE [Concomitant]
     Active Substance: LEVOTHYROXINE
  38. LEVOTHYROXINE [Concomitant]
     Active Substance: LEVOTHYROXINE
     Indication: Product used for unknown indication
     Dosage: UNK
     Route: 065
  39. LEVOTHYROXINE [Concomitant]
     Active Substance: LEVOTHYROXINE
  40. LEVOTHYROXINE [Concomitant]
     Active Substance: LEVOTHYROXINE
  41. LEVOTHYROXINE [Concomitant]
     Active Substance: LEVOTHYROXINE
  42. LOMOTIL [Concomitant]
     Active Substance: ATROPINE SULFATE\DIPHENOXYLATE HYDROCHLORIDE
  43. LOMOTIL [Concomitant]
     Active Substance: ATROPINE SULFATE\DIPHENOXYLATE HYDROCHLORIDE
  44. LOMOTIL [Concomitant]
     Active Substance: ATROPINE SULFATE\DIPHENOXYLATE HYDROCHLORIDE
  45. LOMOTIL [Concomitant]
     Active Substance: ATROPINE SULFATE\DIPHENOXYLATE HYDROCHLORIDE
  46. MUPIROCIN [Concomitant]
     Active Substance: MUPIROCIN
  47. MUPIROCIN [Concomitant]
     Active Substance: MUPIROCIN
     Indication: Product used for unknown indication
     Dosage: UNK
     Route: 065
  48. MUPIROCIN [Concomitant]
     Active Substance: MUPIROCIN
  49. MUPIROCIN [Concomitant]
     Active Substance: MUPIROCIN
  50. MUPIROCIN [Concomitant]
     Active Substance: MUPIROCIN
  51. PERCOCET [Concomitant]
     Active Substance: ACETAMINOPHEN\OXYCODONE HYDROCHLORIDE
  52. PERCOCET [Concomitant]
     Active Substance: ACETAMINOPHEN\OXYCODONE HYDROCHLORIDE
  53. PERCOCET [Concomitant]
     Active Substance: ACETAMINOPHEN\OXYCODONE HYDROCHLORIDE
  54. PERCOCET [Concomitant]
     Active Substance: ACETAMINOPHEN\OXYCODONE HYDROCHLORIDE
  55. PROCHLORPERAZINE [Concomitant]
     Active Substance: PROCHLORPERAZINE
  56. PROCHLORPERAZINE [Concomitant]
     Active Substance: PROCHLORPERAZINE
     Indication: Product used for unknown indication
     Dosage: UNK
     Route: 065
  57. PROCHLORPERAZINE [Concomitant]
     Active Substance: PROCHLORPERAZINE
  58. PROCHLORPERAZINE [Concomitant]
     Active Substance: PROCHLORPERAZINE
  59. PROCHLORPERAZINE [Concomitant]
     Active Substance: PROCHLORPERAZINE
  60. VALIUM [Concomitant]
     Active Substance: DIAZEPAM
  61. VALIUM [Concomitant]
     Active Substance: DIAZEPAM
     Indication: Product used for unknown indication
     Dosage: UNK
     Route: 065
  62. VALIUM [Concomitant]
     Active Substance: DIAZEPAM
  63. VALIUM [Concomitant]
     Active Substance: DIAZEPAM
  64. VALIUM [Concomitant]
     Active Substance: DIAZEPAM

REACTIONS (19)
  - Thrombosis [Unknown]
  - Gait disturbance [Unknown]
  - Limb discomfort [Unknown]
  - Blood chloride decreased [Not Recovered/Not Resolved]
  - Abdominal discomfort [Unknown]
  - Red blood cell count decreased [Unknown]
  - Diarrhoea [Recovering/Resolving]
  - Rash [Unknown]
  - Fatigue [Unknown]
  - Blood pressure increased [Unknown]
  - Blood calcium decreased [Unknown]
  - Asthenia [Unknown]
  - White blood cell count decreased [Not Recovered/Not Resolved]
  - Platelet count decreased [Recovering/Resolving]
  - Neutrophil count decreased [Not Recovered/Not Resolved]
  - Blood sodium decreased [Not Recovered/Not Resolved]
  - Adrenal insufficiency [Recovered/Resolved]
  - Hypothyroidism [Recovered/Resolved]
  - Malaise [Unknown]

NARRATIVE: CASE EVENT DATE: 20211201
